FAERS Safety Report 4602627-0 (Version None)
Quarter: 2005Q1

REPORT INFORMATION
  Report Type: 
  Country: None (occurrence: None)
  Receive Date: 20050308
  Receipt Date: 20050303
  Transmission Date: 20050727
  Serious: Yes (Hospitalization, Other)
  Sender: FDA-Public Use
  Company Number: 05-03-0330

PATIENT
  Age: 49 Year
  Sex: Male

DRUGS (1)
  1. CLOZAPINE [Suspect]
     Indication: PSYCHOTIC DISORDER
     Dosage: 25-300MG QD ORAL
     Route: 048
     Dates: start: 20041001, end: 20050201

REACTIONS (5)
  - DROOLING [None]
  - DRUG INEFFECTIVE [None]
  - HYPOTENSION [None]
  - PNEUMONIA ASPIRATION [None]
  - SEDATION [None]
